FAERS Safety Report 7199641 (Version 10)
Quarter: 2013Q3

REPORT INFORMATION
  Report Type: Spontaneous
  Country: US (occurrence: US)
  Receive Date: 20091204
  Receipt Date: 20130827
  Transmission Date: 20140515
  Serious: Yes (Hospitalization, Other)
  Sender: FDA-Public Use
  Company Number: US-BIOGENIDEC-2009BI038623

PATIENT
  Age: 56 Year
  Sex: Female
  Weight: 79 kg

DRUGS (6)
  1. TYSABRI [Suspect]
     Indication: MULTIPLE SCLEROSIS
     Route: 042
     Dates: start: 20081217, end: 20091027
  2. TYSABRI [Suspect]
     Indication: MULTIPLE SCLEROSIS
     Route: 042
     Dates: start: 20110412, end: 20110412
  3. TYSABRI [Suspect]
     Indication: MULTIPLE SCLEROSIS
     Route: 042
     Dates: start: 20120312, end: 20121212
  4. ZOCOR [Concomitant]
  5. PROZAC [Concomitant]
     Route: 048
  6. VITAMIN B12 [Concomitant]

REACTIONS (11)
  - Breast lump removal [Unknown]
  - Hyperplasia [Unknown]
  - Bronchiolitis [Unknown]
  - Emphysema [Unknown]
  - Adrenal adenoma [Not Recovered/Not Resolved]
  - Abdominal pain [Unknown]
  - Temperature intolerance [Unknown]
  - Chest pain [Unknown]
  - Lung cancer metastatic [Not Recovered/Not Resolved]
  - Lung adenocarcinoma stage I [Recovered/Resolved]
  - Pain [Recovered/Resolved]
